FAERS Safety Report 21186265 (Version 2)
Quarter: 2022Q3

REPORT INFORMATION
  Report Type: Spontaneous
  Country: US (occurrence: US)
  Receive Date: 20220808
  Receipt Date: 20220823
  Transmission Date: 20221027
  Serious: No
  Sender: FDA-Public Use
  Company Number: US-PFIZER INC-202201038216

PATIENT
  Age: 61 Year
  Sex: Female
  Weight: 81 kg

DRUGS (2)
  1. IBRANCE [Suspect]
     Active Substance: PALBOCICLIB
     Indication: Breast cancer female
     Dosage: 125 MG, CYCLIC (TAKE ONE TABLE BY MOUTH EVERY DAY FOR 21 DAYS THEN REST FOR 7 DAYS)
     Route: 048
     Dates: start: 20220726
  2. ONDANSETRON [Concomitant]
     Active Substance: ONDANSETRON
     Indication: Nausea
     Dosage: 8 MG, AS NEEDED (EVERY 8 HOURS AS NEEDED)
     Route: 048
     Dates: start: 20210701

REACTIONS (1)
  - Diarrhoea [Recovered/Resolved]

NARRATIVE: CASE EVENT DATE: 20220801
